FAERS Safety Report 7193199-8 (Version None)
Quarter: 2010Q4

REPORT INFORMATION
  Report Type: 
  Country: None (occurrence: None)
  Receive Date: 20101223
  Receipt Date: 20101207
  Transmission Date: 20110411
  Serious: No
  Sender: FDA-Public Use
  Company Number: US-B.I. PHARMACEUTICALS,INC./RIDGEFIELD-2010-BP-11959BP

PATIENT
  Sex: Female
  Weight: 58.97 kg

DRUGS (4)
  1. COMBIVENT [Suspect]
     Indication: BRONCHITIS CHRONIC
     Route: 055
     Dates: start: 20101020, end: 20101022
  2. COMBIVENT [Suspect]
     Indication: TOBACCO USER
  3. ZITHROMAX [Concomitant]
     Dates: start: 20101020, end: 20101028
  4. EFFEXOR [Concomitant]
     Dates: start: 20101020

REACTIONS (3)
  - GENERALISED ERYTHEMA [None]
  - SWOLLEN TONGUE [None]
  - TACHYCARDIA [None]
